FAERS Safety Report 7574223-7 (Version None)
Quarter: 2011Q2

REPORT INFORMATION
  Report Type: 
  Country: None (occurrence: None)
  Receive Date: 20110627
  Receipt Date: 20110609
  Transmission Date: 20111010
  Serious: Yes (Hospitalization, Disabling)
  Sender: FDA-Public Use
  Company Number: US-BAYER-2011-048327

PATIENT
  Age: 35 Year
  Sex: Female

DRUGS (1)
  1. AVELOX [Suspect]
     Indication: SINUSITIS
     Dosage: DAILY DOSE 400 MG
     Route: 048
     Dates: start: 20110531, end: 20110601

REACTIONS (6)
  - DYSPNOEA [None]
  - GAIT DISTURBANCE [None]
  - PAIN IN JAW [None]
  - NEUROPATHY PERIPHERAL [None]
  - PARAESTHESIA [None]
  - TENDONITIS [None]
